FAERS Safety Report 14247769 (Version 1)
Quarter: 2017Q4

REPORT INFORMATION
  Report Type: Spontaneous
  Country: JP (occurrence: JP)
  Receive Date: 20171204
  Receipt Date: 20171204
  Transmission Date: 20180321
  Serious: Yes (Death)
  Sender: FDA-Public Use
  Company Number: JP-ACTELION-A-CH2017-163119

PATIENT

DRUGS (1)
  1. EPOPROSTENOL ACT [Suspect]
     Active Substance: EPOPROSTENOL
     Indication: HEART DISEASE CONGENITAL
     Dosage: UNK
     Route: 042
     Dates: start: 201512, end: 20160117

REACTIONS (1)
  - Death [Fatal]

NARRATIVE: CASE EVENT DATE: 20160117
